FAERS Safety Report 8217146-2 (Version None)
Quarter: 2012Q1

REPORT INFORMATION
  Report Type: 
  Country: None (occurrence: None)
  Receive Date: 20120314
  Receipt Date: 20120228
  Transmission Date: 20120608
  Serious: Yes (Other)
  Sender: FDA-Public Use
  Company Number: 024628

PATIENT
  Age: 81 Year
  Sex: Female
  Weight: 41 kg

DRUGS (5)
  1. ADONA (CARBAZOCHROME SODIUM SULFONATE) [Concomitant]
  2. MACUGEN [Suspect]
     Indication: CHOROIDAL NEOVASCULARISATION
     Dosage: 0.3MG, SINGLE, INTRAOCULAR
     Route: 031
     Dates: start: 20101222
  3. MACUGEN [Suspect]
     Indication: AGE-RELATED MACULAR DEGENERATION
     Dosage: 0.3MG, SINGLE, INTRAOCULAR
     Route: 031
     Dates: start: 20101222
  4. KARY UNI (PIRENOXINE) [Concomitant]
  5. LEVOFLOXACIN [Concomitant]

REACTIONS (1)
  - RETINAL HAEMORRHAGE [None]
